FAERS Safety Report 4704039-8 (Version None)
Quarter: 2005Q2

REPORT INFORMATION
  Report Type: 
  Country: None (occurrence: None)
  Receive Date: 20050630
  Receipt Date: 20050623
  Transmission Date: 20051028
  Serious: Yes (Death)
  Sender: FDA-Public Use
  Company Number: FR-ROCHE-408788

PATIENT
  Age: 83 Year
  Sex: Male

DRUGS (4)
  1. ROCEPHIN [Suspect]
     Route: 042
     Dates: start: 20030704, end: 20030716
  2. OFLOCET [Suspect]
     Route: 042
     Dates: start: 20030704, end: 20030716
  3. AUGMENTIN [Suspect]
     Route: 048
     Dates: start: 20030704, end: 20030716
  4. FLAGYL [Suspect]
     Route: 042
     Dates: start: 20030704, end: 20030717

REACTIONS (10)
  - CLOSTRIDIUM COLITIS [None]
  - HAEMOGLOBIN DECREASED [None]
  - HAEMORRHAGE [None]
  - HYPERKALAEMIA [None]
  - HYPOTENSION [None]
  - HYPOVOLAEMIC SHOCK [None]
  - RENAL FAILURE [None]
  - SEPSIS [None]
  - SEPTIC SHOCK [None]
  - SMALL INTESTINAL HAEMORRHAGE [None]
